FAERS Safety Report 10019994 (Version 2)
Quarter: 2014Q2

REPORT INFORMATION
  Report Type: Report from Study
  Country: JP (occurrence: JP)
  Receive Date: 20140318
  Receipt Date: 20140512
  Transmission Date: 20141212
  Serious: Yes (Death, Other)
  Sender: FDA-Public Use
  Company Number: JP-TAKEDA-2014TUS001860

PATIENT
  Age: 75 Year
  Sex: Male

DRUGS (8)
  1. FEBURIC [Suspect]
     Indication: GOUT
     Dosage: 20 MG, QD
     Route: 048
     Dates: start: 20121005, end: 20121107
  2. SEFIROM [Suspect]
     Indication: CELLULITIS
     Dosage: 1 G, UNK, IVD
     Dates: start: 20121107, end: 20121107
  3. LIPLE [Concomitant]
     Indication: PERIPHERAL ARTERIAL OCCLUSIVE DISEASE
     Dosage: 5 MG, QD, IVD
     Dates: end: 20121107
  4. AMARYL [Concomitant]
     Indication: TYPE 2 DIABETES MELLITUS
     Dosage: 1 MG, QD
     Route: 048
     Dates: end: 20121107
  5. EQUA [Concomitant]
     Indication: TYPE 2 DIABETES MELLITUS
     Dosage: 1 MG, QD
     Route: 048
     Dates: end: 20121107
  6. GASTER                             /00706001/ [Concomitant]
     Indication: GASTROOESOPHAGEAL REFLUX DISEASE
     Dosage: 40 MG, QD
     Route: 048
     Dates: end: 20121107
  7. KINEDAK [Concomitant]
     Indication: NEUROPATHY PERIPHERAL
     Dosage: 150 MG, QD
     Route: 048
     Dates: end: 20121107
  8. ADALAT CR [Concomitant]
     Indication: HYPERTENSION
     Dosage: 40 MG, QD
     Route: 048
     Dates: end: 20121107

REACTIONS (1)
  - Anaphylactic shock [Fatal]
